FAERS Safety Report 8861053 (Version 1)
Quarter: 2012Q4

REPORT INFORMATION
  Report Type: 
  Country: GB (occurrence: GB)
  Receive Date: 20121025
  Receipt Date: 20121025
  Transmission Date: 20130627
  Serious: Yes (Other)
  Sender: FDA-Public Use
  Company Number: GB-B.I. PHARMACEUTICALS,INC./RIDGEFIELD-2012-UK-01525UK

PATIENT
  Sex: Male

DRUGS (1)
  1. MIRAPEXIN [Suspect]
     Indication: PARKINSON^S DISEASE
     Dates: end: 201106

REACTIONS (9)
  - Impulse-control disorder [Recovered/Resolved]
  - Pathological gambling [Recovered/Resolved]
  - Libido increased [Recovered/Resolved]
  - Binge eating [Recovered/Resolved]
  - Hypersexuality [Recovered/Resolved]
  - Motor dysfunction [Unknown]
  - Abnormal behaviour [Recovered/Resolved]
  - Abnormal behaviour [Recovered/Resolved]
  - Sexual activity increased [Recovered/Resolved]
